FAERS Safety Report 9517861 (Version 1)
Quarter: 2013Q1

REPORT INFORMATION
  Report Type: Spontaneous
  Country: US (occurrence: None)
  Receive Date: 20130305
  Receipt Date: 20130305
  Transmission Date: 20140127
  Serious: Yes (Other)
  Sender: FDA-Public Use
  Company Number: 163-21880-12121088

PATIENT
  Age: 57 Year
  Sex: Male
  Weight: 104.3 kg

DRUGS (1)
  1. REVLIMID [Suspect]
     Indication: PLASMA CELL MYELOMA
     Dosage: 21 IN 28 D
     Route: 048
     Dates: start: 20120927, end: 2012

REACTIONS (3)
  - Pancytopenia [None]
  - Pyrexia [None]
  - Plasma cell myeloma [None]
